FAERS Safety Report 6097378-2 (Version None)
Quarter: 2009Q1

REPORT INFORMATION
  Report Type: 
  Country: None (occurrence: None)
  Receive Date: 20090219
  Receipt Date: 20081031
  Transmission Date: 20090719
  Serious: No
  Sender: FDA-Public Use
  Company Number: WAES 0811USA00038

PATIENT
  Age: 84 Year
  Sex: Female

DRUGS (1)
  1. JANUVIA [Suspect]
     Indication: TYPE 2 DIABETES MELLITUS
     Dosage: PO
     Route: 048
     Dates: start: 20081028, end: 20081031

REACTIONS (2)
  - HYPERSENSITIVITY [None]
  - WRONG TECHNIQUE IN DRUG USAGE PROCESS [None]
